FAERS Safety Report 15257902 (Version 1)
Quarter: 2018Q3

REPORT INFORMATION
  Report Type: Spontaneous
  Country: US (occurrence: US)
  Receive Date: 20180808
  Receipt Date: 20180808
  Transmission Date: 20181010
  Serious: No
  Sender: FDA-Public Use
  Company Number: US-JNJFOC-20180732950

PATIENT
  Age: 67 Year
  Sex: Male
  Weight: 86.18 kg

DRUGS (2)
  1. LUPRON [Concomitant]
     Active Substance: LEUPROLIDE ACETATE
     Route: 065
     Dates: start: 201802
  2. ZYTIGA [Suspect]
     Active Substance: ABIRATERONE ACETATE
     Indication: PROSTATE CANCER
     Route: 048
     Dates: start: 201802

REACTIONS (3)
  - Mental disorder [Unknown]
  - Arthralgia [Unknown]
  - Hot flush [Unknown]

NARRATIVE: CASE EVENT DATE: 201802
